FAERS Safety Report 23550344 (Version 2)
Quarter: 2024Q1

REPORT INFORMATION
  Report Type: Spontaneous
  Country: AZ (occurrence: AZ)
  Receive Date: 20240221
  Receipt Date: 20240306
  Transmission Date: 20240409
  Serious: Yes (Other)
  Sender: FDA-Public Use
  Company Number: AZ-002147023-NVSC2024AZ036227

PATIENT
  Age: 7 Year
  Sex: Female
  Weight: 22 kg

DRUGS (2)
  1. CYCLOSPORINE [Suspect]
     Active Substance: CYCLOSPORINE
     Indication: Bone marrow transplant
     Dosage: 60 MILLIGRAM PER MILLILITRE
     Route: 042
     Dates: start: 20231220, end: 20240107
  2. CYCLOSPORINE [Suspect]
     Active Substance: CYCLOSPORINE
     Indication: Immunosuppression
     Dosage: 50 MILLIGRAM PER MILLILITRE
     Route: 042

REACTIONS (3)
  - Rash [Recovered/Resolved]
  - Pruritus [Recovered/Resolved]
  - Erythema [Recovered/Resolved]

NARRATIVE: CASE EVENT DATE: 20231220
